FAERS Safety Report 24093638 (Version 1)
Quarter: 2024Q3

REPORT INFORMATION
  Report Type: Spontaneous
  Country: US (occurrence: US)
  Receive Date: 20240715
  Receipt Date: 20240715
  Transmission Date: 20241017
  Serious: No
  Sender: PRINSTON PHARMACEUTICAL
  Company Number: US-PRINSTON PHARMACEUTICAL INC.-2023PRN00403

PATIENT
  Sex: Female

DRUGS (1)
  1. BUPROPION HYDROCHLORIDE [Suspect]
     Active Substance: BUPROPION HYDROCHLORIDE
     Dosage: UNK, 1X/DAY

REACTIONS (5)
  - Illness [Unknown]
  - Diarrhoea [Unknown]
  - Product odour abnormal [Unknown]
  - Product taste abnormal [Unknown]
  - Product formulation issue [Unknown]
